FAERS Safety Report 7225681-9 (Version None)
Quarter: 2011Q1

REPORT INFORMATION
  Report Type: 
  Country: None (occurrence: None)
  Receive Date: 20110113
  Receipt Date: 20110110
  Transmission Date: 20110831
  Serious: Yes (Other)
  Sender: FDA-Public Use
  Company Number: US-BRISTOL-MYERS SQUIBB COMPANY-15477961

PATIENT
  Age: 83 Year
  Sex: Female
  Weight: 68 kg

DRUGS (4)
  1. XALATAN [Suspect]
     Dosage: EYE DROPS,SOLUTION IN EACH EYES,RECENT DOSE 08DEC10,20DEC10
     Route: 047
  2. PRAVACHOL [Suspect]
  3. LIPITOR [Suspect]
     Dosage: FILM COATED TAB
  4. MEVACOR [Suspect]

REACTIONS (6)
  - MYALGIA [None]
  - MUSCULAR WEAKNESS [None]
  - BACK PAIN [None]
  - CATARACT [None]
  - THINKING ABNORMAL [None]
  - GLAUCOMA [None]
